FAERS Safety Report 13086240 (Version 2)
Quarter: 2017Q1

REPORT INFORMATION
  Report Type: Spontaneous
  Country: FR (occurrence: FR)
  Receive Date: 20170104
  Receipt Date: 20170111
  Transmission Date: 20170428
  Serious: Yes (Hospitalization, Other)
  Sender: FDA-Public Use
  Company Number: FR-ABBVIE-17P-056-1828301-00

PATIENT
  Sex: Female

DRUGS (1)
  1. DEPAKINE CHRONO [Suspect]
     Active Substance: VALPROATE SODIUM
     Indication: MATERNAL EXPOSURE TIMING UNSPECIFIED
     Route: 064

REACTIONS (10)
  - Joint dislocation [Unknown]
  - Dysgraphia [Unknown]
  - Congenital knee deformity [Unknown]
  - Reading disorder [Not Recovered/Not Resolved]
  - Fall [Unknown]
  - Dyslexia [Unknown]
  - Osteoarthritis [Unknown]
  - Foetal exposure during pregnancy [Unknown]
  - Osteoarthritis [Not Recovered/Not Resolved]
  - Ligament rupture [Recovered/Resolved with Sequelae]

NARRATIVE: CASE EVENT DATE: 2016
